FAERS Safety Report 24630988 (Version 1)
Quarter: 2024Q4

REPORT INFORMATION
  Report Type: Spontaneous
  Country: US (occurrence: None)
  Receive Date: 20241116
  Receipt Date: 20241116
  Transmission Date: 20250114
  Serious: Yes (Life-Threatening)
  Sender: Public
  Company Number: None

PATIENT
  Age: 46 Year
  Sex: Female
  Weight: 66.6 kg

DRUGS (7)
  1. ENTYVIO [Suspect]
     Active Substance: VEDOLIZUMAB
     Indication: Colitis ulcerative
     Dosage: OTHER FREQUENCY : THIRD LOADING DOSE;?
     Route: 042
     Dates: start: 20241002, end: 20241113
  2. ZOLOFT [Concomitant]
     Active Substance: SERTRALINE HYDROCHLORIDE
  3. LIALDA [Concomitant]
     Active Substance: MESALAMINE
  4. CANASA [Concomitant]
     Active Substance: MESALAMINE
  5. Budesonide foam [Concomitant]
  6. PREDNISONE [Concomitant]
  7. Multivitamin [Concomitant]

REACTIONS (2)
  - Infusion related reaction [None]
  - Anaphylactic reaction [None]

NARRATIVE: CASE EVENT DATE: 20241113
